FAERS Safety Report 13638496 (Version 1)
Quarter: 2017Q2

REPORT INFORMATION
  Report Type: Spontaneous
  Country: GR (occurrence: GR)
  Receive Date: 20170609
  Receipt Date: 20170609
  Transmission Date: 20170830
  Serious: Yes (Other)
  Sender: FDA-Public Use
  Company Number: GR-SA-2017SA102422

PATIENT
  Age: 50 Year
  Sex: Male

DRUGS (2)
  1. LYXUMIA [Suspect]
     Active Substance: LIXISENATIDE
     Route: 058
     Dates: start: 2017, end: 201705
  2. METFORMIN [Concomitant]
     Active Substance: METFORMIN HYDROCHLORIDE

REACTIONS (1)
  - Cerebrovascular accident [Recovered/Resolved]

NARRATIVE: CASE EVENT DATE: 201705
